FAERS Safety Report 22257471 (Version 22)
Quarter: 2023Q4

REPORT INFORMATION
  Report Type: Report from Study
  Country: US (occurrence: US)
  Receive Date: 20230427
  Receipt Date: 20231105
  Transmission Date: 20240110
  Serious: Yes (Hospitalization)
  Sender: FDA-Public Use
  Company Number: US-JNJFOC-20230452562

PATIENT
  Age: 52 Year
  Sex: Female
  Weight: 80.5 kg

DRUGS (10)
  1. SELEXIPAG [Suspect]
     Active Substance: SELEXIPAG
     Indication: Pulmonary arterial hypertension
     Route: 048
  2. SELEXIPAG [Suspect]
     Active Substance: SELEXIPAG
     Dosage: EXPIRY DATE 28-FEB-2025
     Route: 048
  3. SELEXIPAG [Suspect]
     Active Substance: SELEXIPAG
     Route: 048
  4. SELEXIPAG [Suspect]
     Active Substance: SELEXIPAG
     Route: 048
  5. SELEXIPAG [Suspect]
     Active Substance: SELEXIPAG
     Route: 048
  6. SELEXIPAG [Suspect]
     Active Substance: SELEXIPAG
     Dosage: UPTRAVI 1400MCG ORALLY
     Route: 048
  7. SELEXIPAG [Suspect]
     Active Substance: SELEXIPAG
     Route: 048
  8. AMBRISENTAN [Concomitant]
     Active Substance: AMBRISENTAN
  9. TADALAFIL [Concomitant]
     Active Substance: TADALAFIL
  10. XARELTO [Concomitant]
     Active Substance: RIVAROXABAN

REACTIONS (19)
  - Hepatic steatosis [Recovering/Resolving]
  - Pain [Recovering/Resolving]
  - Headache [Recovering/Resolving]
  - Mood swings [Recovering/Resolving]
  - Pain in jaw [Recovering/Resolving]
  - Myalgia [Recovering/Resolving]
  - Rash erythematous [Recovering/Resolving]
  - Oedema peripheral [Recovering/Resolving]
  - Wound [Recovering/Resolving]
  - Flushing [Recovering/Resolving]
  - Limb injury [Recovering/Resolving]
  - Pain in extremity [Unknown]
  - Asthenia [Unknown]
  - Insomnia [Unknown]
  - Arthralgia [Not Recovered/Not Resolved]
  - Nausea [Unknown]
  - Extra dose administered [Unknown]
  - Coronavirus infection [Recovered/Resolved]
  - Gout [Unknown]

NARRATIVE: CASE EVENT DATE: 20230101
